FAERS Safety Report 7750493-7 (Version None)
Quarter: 2011Q3

REPORT INFORMATION
  Report Type: 
  Country: None (occurrence: None)
  Receive Date: 20110914
  Receipt Date: 20110902
  Transmission Date: 20111222
  Serious: Yes (Hospitalization)
  Sender: FDA-Public Use
  Company Number: FR-PFIZER INC-2011205329

PATIENT
  Age: 59 Year
  Sex: Female

DRUGS (12)
  1. ERBITUX [Suspect]
     Indication: METASTASIS
  2. STABLON [Concomitant]
     Indication: DEPRESSION
     Dosage: 1 DF, 2X/DAY
  3. CREON [Concomitant]
     Dosage: 25000 IU, 3 TO 6 TIMES PER DAY
  4. CLONAZEPAM [Concomitant]
     Dosage: 12 GTT, 1X/DAY
  5. TEMSIROLIMUS [Suspect]
     Indication: NEOPLASM
     Dosage: 15 MG, 1X/DAY
     Route: 042
     Dates: start: 20110818, end: 20110823
  6. TEMSIROLIMUS [Suspect]
     Indication: METASTASIS
  7. NEXIUM [Concomitant]
     Dosage: 20 MG, 1X/DAY
  8. MAGNE-B6 [Concomitant]
     Dosage: 2 DF, 3X/DAY
  9. IMOVANE [Concomitant]
     Dosage: 1 DF, 1X/DAY
  10. ACETAMINOPHEN AND CODEINE PHOSPHATE [Concomitant]
     Dosage: 1 G, 3X/DAY, AS NEEDED
  11. ERBITUX [Suspect]
     Indication: NEOPLASM
     Dosage: 276 MG, 1X/DAY
     Route: 042
     Dates: start: 20110818, end: 20110823
  12. CLASTOBAN [Concomitant]
     Dosage: 2 DF, 1X/DAY

REACTIONS (1)
  - VENA CAVA THROMBOSIS [None]
